FAERS Safety Report 16687836 (Version 1)
Quarter: 2019Q3

REPORT INFORMATION
  Report Type: Spontaneous
  Country: US (occurrence: US)
  Receive Date: 20190809
  Receipt Date: 20190809
  Transmission Date: 20191004
  Serious: Yes (Other)
  Sender: FDA-Public Use
  Company Number: US-BRISTOL-MYERS SQUIBB COMPANY-BMS-2019-078498

PATIENT
  Age: 64 Year
  Sex: Female

DRUGS (1)
  1. NIVOLUMAB [Suspect]
     Active Substance: NIVOLUMAB
     Indication: URETHRAL CANCER METASTATIC
     Dosage: UNK
     Route: 065
     Dates: end: 2016

REACTIONS (2)
  - Pneumonitis [Unknown]
  - Intentional product use issue [Unknown]
